FAERS Safety Report 10467089 (Version 2)
Quarter: 2014Q3

REPORT INFORMATION
  Report Type: Spontaneous
  Country: CA (occurrence: CA)
  Receive Date: 20140922
  Receipt Date: 20140922
  Transmission Date: 20150326
  Serious: Yes (Other)
  Sender: FDA-Public Use
  Company Number: CA-ABBVIE-14P-028-1261253-00

PATIENT
  Age: 60 Year
  Sex: Female

DRUGS (3)
  1. ETIBI [Suspect]
     Active Substance: ETHAMBUTOL HYDROCHLORIDE
     Indication: INFECTION
  2. CO LEVOFLOXACIN [Suspect]
     Active Substance: LEVOFLOXACIN
     Indication: INFECTION
  3. BIAXIN [Suspect]
     Active Substance: CLARITHROMYCIN
     Indication: INFECTION

REACTIONS (2)
  - Malaise [Unknown]
  - Drug ineffective [Unknown]
